FAERS Safety Report 16356642 (Version 2)
Quarter: 2019Q2

REPORT INFORMATION
  Report Type: Report from Study
  Country: RO (occurrence: RO)
  Receive Date: 20190527
  Receipt Date: 20190531
  Transmission Date: 20190711
  Serious: Yes (Death, Hospitalization, Other)
  Sender: FDA-Public Use
  Company Number: RO-GILEAD-2019-0409766

PATIENT
  Age: 61 Year
  Sex: Male

DRUGS (2)
  1. LEDIPASVIR/SOFOSBUVIR [Suspect]
     Active Substance: LEDIPASVIR\SOFOSBUVIR
     Indication: HEPATITIS C
     Dosage: 1 DOSAGE FORM, QD
     Route: 048
     Dates: start: 20190323, end: 20190519
  2. LEDIPASVIR/SOFOSBUVIR [Suspect]
     Active Substance: LEDIPASVIR\SOFOSBUVIR
     Indication: HEPATIC CIRRHOSIS

REACTIONS (6)
  - Cardiac fibrillation [Fatal]
  - Cardiac failure [Fatal]
  - Cardiac disorder [Fatal]
  - Mitral valve stenosis [Fatal]
  - Congestive cardiomyopathy [Fatal]
  - Malaise [Unknown]

NARRATIVE: CASE EVENT DATE: 201905
